FAERS Safety Report 5750436-1 (Version None)
Quarter: 2008Q2

REPORT INFORMATION
  Report Type: 
  Country: None (occurrence: None)
  Receive Date: 20080528
  Receipt Date: 20070606
  Transmission Date: 20081010
  Serious: No
  Sender: FDA-Public Use
  Company Number: US-KINGPHARMUSA00001-K200700702

PATIENT

DRUGS (41)
  1. AVINZA [Suspect]
     Indication: PAIN
     Dosage: 60 MG, QD
     Route: 048
     Dates: start: 20070301, end: 20070602
  2. LORTAB [Concomitant]
     Dosage: 10/500, PRN
  3. MAXZIDE [Concomitant]
  4. LASIX [Concomitant]
     Dosage: 40 MG, QD
  5. ZESTRIL [Concomitant]
     Dosage: 20 MG, BID
  6. ZESTRIL [Concomitant]
     Dosage: 10 MG, QD
  7. LOPRESSOR [Concomitant]
     Dosage: 100 MG, QID
  8. MINOXIDIL [Concomitant]
     Dosage: 10 MG, BID
  9. METHOTREXATE [Concomitant]
     Dosage: 7.5 MG, QW
  10. PLAQUENIL [Concomitant]
     Dosage: 200 MG, BID
  11. LOTEMAX [Concomitant]
     Indication: IRITIS
  12. ASPIRIN [Concomitant]
     Indication: PROPHYLAXIS
     Dosage: 81 MG, QD
  13. COUMADIN [Concomitant]
     Indication: PROPHYLAXIS
     Dosage: 3 MG, QD
  14. XANAX [Concomitant]
     Dosage: .5 MG, TID
  15. LEXAPRO [Concomitant]
     Dosage: 20 MG, QD
  16. SONATA  /01454001/ [Concomitant]
     Dosage: 10 MG, QHS
  17. FOLIC ACID [Concomitant]
     Dosage: 1 MG, QD
  18. POTASSIUM CHLORIDE [Concomitant]
     Dosage: 20 MG, QD, AM
  19. POTASSIUM CHLORIDE [Concomitant]
     Dosage: 10 MG, QD, PM
  20. CALCIUM W/VITAMIN D NOS [Concomitant]
     Dosage: 1500 MG, QD
  21. TRILEPTAL [Concomitant]
     Dosage: 600 MG, QID
  22. BACLOFEN [Concomitant]
     Dosage: 10 MG, BID
  23. FLOMAX [Concomitant]
     Dosage: .4 MG, QD
  24. CRESTOR [Concomitant]
     Dosage: 10 MG, QD
  25. ZETIA [Concomitant]
     Dosage: 10 MG, QD
  26. REGLAN [Concomitant]
     Dosage: 5 MG, QID
  27. TYLENOL (CAPLET) [Concomitant]
     Dosage: UNK, PRN
  28. NEXIUM [Concomitant]
     Dosage: UNK, BID
  29. SENOKOT [Concomitant]
     Dosage: 1 TAB, QID
  30. ZANTAC [Concomitant]
     Dosage: 150 MG, QD PM
  31. NULYTELY  /01053601/ [Concomitant]
     Dosage: 1 TAB, QD AM
  32. ZELNORM [Concomitant]
     Dosage: 6 MG, BID
  33. MUCINEX [Concomitant]
     Dosage: 400 MG, BID
  34. ADVAIR DISKUS 100/50 [Concomitant]
  35. COMBIVENT 1033501/ [Concomitant]
  36. SPIRIVA [Concomitant]
  37. AMITIZA [Concomitant]
     Dosage: 24 MEQ, BID
  38. UDAMIN [Concomitant]
     Dosage: 600 MG, BID
  39. VECTAL [Concomitant]
     Dosage: 10 MG, QD
  40. SENEGIN [Concomitant]
     Dosage: UNK, PRN
  41. BENTYL [Concomitant]
     Dosage: 10 MG, QID, Q6H

REACTIONS (2)
  - DRUG LEVEL DECREASED [None]
  - MEDICATION RESIDUE [None]
